FAERS Safety Report 20745518 (Version 6)
Quarter: 2022Q3

REPORT INFORMATION
  Report Type: Report from Study
  Country: US (occurrence: US)
  Receive Date: 20220425
  Receipt Date: 20220822
  Transmission Date: 20221027
  Serious: Yes (Other)
  Sender: FDA-Public Use
  Company Number: US-XERIS PHARMACEUTICALS-2022XER00165

PATIENT
  Sex: Female

DRUGS (5)
  1. RECORLEV [Suspect]
     Active Substance: LEVOKETOCONAZOLE
     Indication: Cushing^s syndrome
     Dosage: ONE TABLET (150 MG), 2X/DAY
     Route: 048
     Dates: start: 202203, end: 20220512
  2. RECORLEV [Suspect]
     Active Substance: LEVOKETOCONAZOLE
     Dosage: 1 TABLET (150 MG), 1X/DAY IN THE MORNING
     Route: 048
     Dates: start: 20220513, end: 20220611
  3. RECORLEV [Suspect]
     Active Substance: LEVOKETOCONAZOLE
     Dosage: 2 TABLETS (300 MG), 1X/DAY IN THE EVENING
     Route: 048
     Dates: start: 20220513, end: 20220611
  4. PANTOPRAZOLE [Suspect]
     Active Substance: PANTOPRAZOLE
     Indication: Gastrooesophageal reflux disease
     Dosage: UNK
  5. CORTISONE [Suspect]
     Active Substance: CORTISONE

REACTIONS (20)
  - Diverticulitis [Unknown]
  - Decreased appetite [Unknown]
  - Nausea [Recovering/Resolving]
  - Vomiting [Recovering/Resolving]
  - Abdominal pain [Unknown]
  - Muscle spasms [Recovering/Resolving]
  - Therapeutic product effect incomplete [Recovering/Resolving]
  - Stress [Recovering/Resolving]
  - Blood glucose increased [Unknown]
  - Blood potassium increased [Recovered/Resolved]
  - Dyspnoea [Unknown]
  - Dysstasia [Recovering/Resolving]
  - Gait disturbance [Unknown]
  - Defaecation urgency [Unknown]
  - Middle insomnia [Recovering/Resolving]
  - Dyspepsia [Recovering/Resolving]
  - Back pain [Recovering/Resolving]
  - Alopecia [Recovering/Resolving]
  - Headache [Unknown]
  - Myalgia [Recovered/Resolved]

NARRATIVE: CASE EVENT DATE: 20220101
